FAERS Safety Report 19041087 (Version 3)
Quarter: 2021Q2

REPORT INFORMATION
  Report Type: Spontaneous
  Country: US (occurrence: US)
  Receive Date: 20210322
  Receipt Date: 20210504
  Transmission Date: 20210717
  Serious: No
  Sender: FDA-Public Use
  Company Number: US-JNJFOC-20210329984

PATIENT
  Age: 38 Year
  Sex: Female

DRUGS (1)
  1. TOPAMAX [Suspect]
     Active Substance: TOPIRAMATE
     Indication: PRODUCT USED FOR UNKNOWN INDICATION
     Dosage: PATIENT STARTED TREATMENT ON AN UNSPECIFIED DATE (REPORTED AS SEVERAL MONTHS AGO)
     Route: 048

REACTIONS (2)
  - Cognitive disorder [Unknown]
  - Drug ineffective [Unknown]
